FAERS Safety Report 24001056 (Version 2)
Quarter: 2024Q2

REPORT INFORMATION
  Report Type: Spontaneous
  Country: CN (occurrence: CN)
  Receive Date: 20240621
  Receipt Date: 20240627
  Transmission Date: 20240716
  Serious: Yes (Hospitalization, Other)
  Sender: FDA-Public Use
  Company Number: CN-002147023-NVSC2024CN129823

PATIENT
  Age: 71 Year
  Sex: Male
  Weight: 60 kg

DRUGS (4)
  1. TEGRETOL [Suspect]
     Active Substance: CARBAMAZEPINE
     Indication: Facial spasm
     Dosage: 0.10 G, QD
     Route: 048
     Dates: start: 20240527, end: 20240529
  2. TEGRETOL [Suspect]
     Active Substance: CARBAMAZEPINE
     Dosage: 0.1 G, BID
     Route: 048
     Dates: start: 20240530, end: 20240601
  3. TEGRETOL [Suspect]
     Active Substance: CARBAMAZEPINE
     Dosage: 0.2 G, BID
     Route: 048
     Dates: start: 20240602, end: 20240606
  4. TEGRETOL [Suspect]
     Active Substance: CARBAMAZEPINE
     Dosage: 0.1 G, BID
     Route: 048
     Dates: start: 20240609, end: 20240610

REACTIONS (9)
  - Rash maculo-papular [Recovering/Resolving]
  - Cerebral infarction [Unknown]
  - Cerebral atrophy [Unknown]
  - Drug eruption [Recovering/Resolving]
  - Gallbladder polyp [Unknown]
  - Splenomegaly [Unknown]
  - Cough [Unknown]
  - Pyrexia [Unknown]
  - Dyspnoea [Unknown]

NARRATIVE: CASE EVENT DATE: 20240610
